FAERS Safety Report 12333277 (Version 1)
Quarter: 2016Q2

REPORT INFORMATION
  Report Type: Spontaneous
  Country: US (occurrence: US)
  Receive Date: 20160504
  Receipt Date: 20160504
  Transmission Date: 20160815
  Serious: No
  Sender: FDA-Public Use
  Company Number: US-ROCHE-1677265

PATIENT
  Age: 83 Year
  Sex: Male

DRUGS (12)
  1. PREDNISONE. [Concomitant]
     Active Substance: PREDNISONE
     Route: 065
     Dates: start: 20150619
  2. FENTANYL. [Concomitant]
     Active Substance: FENTANYL
     Route: 065
     Dates: start: 20150119
  3. FUROSEMIDE. [Concomitant]
     Active Substance: FUROSEMIDE
     Route: 065
     Dates: start: 20150619
  4. WARFARIN [Concomitant]
     Active Substance: WARFARIN
     Route: 065
     Dates: start: 20150619
  5. LISINOPRIL. [Concomitant]
     Active Substance: LISINOPRIL
     Route: 065
     Dates: start: 20150619
  6. METOPROLOL. [Concomitant]
     Active Substance: METOPROLOL
     Route: 065
     Dates: start: 20150619
  7. ESBRIET [Suspect]
     Active Substance: PIRFENIDONE
     Indication: IDIOPATHIC PULMONARY FIBROSIS
     Route: 048
     Dates: start: 20150529
  8. CLINDAMYCIN [Concomitant]
     Active Substance: CLINDAMYCIN\CLINDAMYCIN PHOSPHATE
     Route: 065
     Dates: start: 20150904
  9. GABAPENTIN. [Concomitant]
     Active Substance: GABAPENTIN
     Route: 065
     Dates: start: 20150619
  10. SEROQUEL [Concomitant]
     Active Substance: QUETIAPINE FUMARATE
     Route: 065
     Dates: start: 20150619
  11. ESBRIET [Suspect]
     Active Substance: PIRFENIDONE
     Route: 048
     Dates: start: 20150719, end: 20150729
  12. LOVASTATIN. [Concomitant]
     Active Substance: LOVASTATIN
     Route: 065
     Dates: start: 20150619

REACTIONS (2)
  - Drug dose omission [Unknown]
  - Hypersomnia [Not Recovered/Not Resolved]

NARRATIVE: CASE EVENT DATE: 201511
